FAERS Safety Report 5752222-5 (Version None)
Quarter: 2008Q2

REPORT INFORMATION
  Report Type: 
  Country: None (occurrence: None)
  Receive Date: 20080529
  Receipt Date: 20080519
  Transmission Date: 20081010
  Serious: Yes (Death)
  Sender: FDA-Public Use
  Company Number: FR-ROCHE-565212

PATIENT

DRUGS (3)
  1. XELODA [Suspect]
     Route: 065
  2. BEVACIZUMAB [Suspect]
     Indication: COLORECTAL CANCER
     Route: 065
  3. OXALIPLATIN [Suspect]
     Route: 065

REACTIONS (1)
  - DEATH [None]
